FAERS Safety Report 5935482-7 (Version None)
Quarter: 2008Q4

REPORT INFORMATION
  Report Type: 
  Country: None (occurrence: None)
  Receive Date: 20081028
  Receipt Date: 20081020
  Transmission Date: 20090506
  Serious: Yes (Hospitalization, Other)
  Sender: FDA-Public Use
  Company Number: 2008SP020185

PATIENT
  Age: 46 Year
  Sex: Female

DRUGS (2)
  1. PEG-INTRON [Suspect]
     Indication: HEPATITIS C
     Dosage: SC
     Route: 058
     Dates: start: 20080425
  2. RIBAVIRIN [Suspect]
     Indication: HEPATITIS C
     Dosage: PO
     Route: 048
     Dates: start: 20080425

REACTIONS (21)
  - ANAEMIA [None]
  - ASTHENIA [None]
  - AUTOIMMUNE THYROIDITIS [None]
  - BURNING SENSATION [None]
  - CONFUSIONAL STATE [None]
  - DEHYDRATION [None]
  - DIZZINESS [None]
  - DYSPNOEA EXERTIONAL [None]
  - FALL [None]
  - FATIGUE [None]
  - GAIT DISTURBANCE [None]
  - GLOSSODYNIA [None]
  - HYPOAESTHESIA [None]
  - MASTICATION DISORDER [None]
  - NASAL CONGESTION [None]
  - PAIN IN EXTREMITY [None]
  - RHINORRHOEA [None]
  - SINUSITIS [None]
  - TONGUE DISORDER [None]
  - VERTIGO [None]
  - WHITE BLOOD CELL COUNT DECREASED [None]
